FAERS Safety Report 9908315 (Version 1)
Quarter: 2014Q1

REPORT INFORMATION
  Report Type: Spontaneous
  Country: US (occurrence: None)
  Receive Date: 20140212
  Receipt Date: 20140212
  Transmission Date: 20141002
  Serious: Yes (Other)
  Sender: FDA-Public Use
  Company Number: None

PATIENT
  Age: 87 Year
  Sex: Female

DRUGS (1)
  1. ZYTIGA, 250 MG, JANSSEN [Suspect]
     Indication: PROSTATE CANCER
     Route: 048
     Dates: start: 20130605, end: 20140208

REACTIONS (2)
  - Cardiac failure [None]
  - Death [None]
